FAERS Safety Report 4321274-1 (Version None)
Quarter: 2004Q1

REPORT INFORMATION
  Report Type: 
  Country: None (occurrence: None)
  Receive Date: 20040322
  Receipt Date: 20021227
  Transmission Date: 20041129
  Serious: No
  Sender: FDA-Public Use
  Company Number: US-BRISTOL-MYERS SQUIBB COMPANY-12197042

PATIENT
  Age: 21 Year
  Sex: Female

DRUGS (2)
  1. MONISTAT [Suspect]
     Route: 067
     Dates: start: 20021226, end: 20021226
  2. ALBUTEROL [Concomitant]

REACTIONS (2)
  - GENITAL PRURITUS FEMALE [None]
  - OEDEMA GENITAL [None]
